FAERS Safety Report 8169446-2 (Version None)
Quarter: 2012Q1

REPORT INFORMATION
  Report Type: 
  Country: None (occurrence: None)
  Receive Date: 20120228
  Receipt Date: 20120214
  Transmission Date: 20120608
  Serious: Yes (Other)
  Sender: FDA-Public Use
  Company Number: US-RANBAXY-2012US-53089

PATIENT
  Age: 51 Year
  Sex: Male

DRUGS (4)
  1. GABAPENTIN [Suspect]
     Indication: NEURALGIA
     Dosage: UNK
     Route: 065
  2. BORTEZOMIB [Suspect]
     Indication: NEURALGIA
     Dosage: UNK
     Route: 065
  3. DULOXETINE HYDROCHLORIDE [Suspect]
     Indication: NEURALGIA
     Dosage: UNK
     Route: 065
  4. NORTRIPTYLINE HYDROCHLORIDE [Suspect]
     Indication: NEURALGIA
     Dosage: 50 MG, QHS
     Route: 065

REACTIONS (10)
  - ORTHOSTATIC HYPOTENSION [None]
  - TREMOR [None]
  - CONFUSIONAL STATE [None]
  - DYSPNOEA [None]
  - HYPERHIDROSIS [None]
  - NEURALGIA [None]
  - NAUSEA [None]
  - DIZZINESS [None]
  - AGITATION [None]
  - RESTLESSNESS [None]
